FAERS Safety Report 12831914 (Version 1)
Quarter: 2016Q4

REPORT INFORMATION
  Report Type: Spontaneous
  Country: CN (occurrence: CN)
  Receive Date: 20161010
  Receipt Date: 20161010
  Transmission Date: 20170207
  Serious: Yes (Other)
  Sender: FDA-Public Use
  Company Number: CN-ROCHE-1840033

PATIENT
  Age: 1 Year
  Sex: Male
  Weight: 11 kg

DRUGS (4)
  1. RIBAVIRIN. [Suspect]
     Active Substance: RIBAVIRIN
     Indication: BRONCHITIS
     Route: 041
     Dates: start: 20160405, end: 20160413
  2. CEFUROXIME SODIUM. [Suspect]
     Active Substance: CEFUROXIME SODIUM
     Indication: BRONCHITIS
     Route: 041
     Dates: start: 20160405, end: 20160408
  3. IBUPROFEN SUSTAINED RELEASE [Concomitant]
     Indication: PYREXIA
     Route: 048
     Dates: start: 20160405, end: 20160411
  4. ROCEPHIN [Suspect]
     Active Substance: CEFTRIAXONE SODIUM
     Indication: BRONCHITIS
     Route: 041
     Dates: start: 20160408, end: 20160413

REACTIONS (2)
  - Neutrophil count decreased [Unknown]
  - Hepatic function abnormal [Unknown]

NARRATIVE: CASE EVENT DATE: 20160413
